FAERS Safety Report 15567483 (Version 1)
Quarter: 2018Q4

REPORT INFORMATION
  Report Type: Spontaneous
  Country: JP (occurrence: JP)
  Receive Date: 20181030
  Receipt Date: 20181030
  Transmission Date: 20190205
  Serious: Yes (Other)
  Sender: FDA-Public Use
  Company Number: JP-BAUSCH-BL-2016-018612

PATIENT
  Age: 68 Year
  Sex: Male

DRUGS (8)
  1. EYLEA [Suspect]
     Active Substance: AFLIBERCEPT
     Dosage: INTRAVITREAL
     Route: 031
     Dates: start: 20160127
  2. EYLEA [Suspect]
     Active Substance: AFLIBERCEPT
     Dosage: INTRAVITREAL
     Route: 031
     Dates: start: 20150911
  3. LUCENTIS [Suspect]
     Active Substance: RANIBIZUMAB
     Indication: AGE-RELATED MACULAR DEGENERATION
     Dosage: INTRAVITREAL?SOLUTION IN SYRINGE
     Route: 031
     Dates: start: 20150701, end: 20150701
  4. EYLEA [Suspect]
     Active Substance: AFLIBERCEPT
     Indication: AGE-RELATED MACULAR DEGENERATION
     Dosage: INTRAVITREAL
     Route: 031
     Dates: start: 20150911
  5. LUCENTIS [Suspect]
     Active Substance: RANIBIZUMAB
     Indication: POLYPOIDAL CHOROIDAL VASCULOPATHY
     Dosage: INTRAVITREAL?SOLUTION IN SYRINGE
     Route: 031
     Dates: start: 20150527
  6. VISUDYNE [Suspect]
     Active Substance: VERTEPORFIN
     Indication: AGE-RELATED MACULAR DEGENERATION
     Route: 042
  7. VISUDYNE [Suspect]
     Active Substance: VERTEPORFIN
     Indication: POLYPOIDAL CHOROIDAL VASCULOPATHY
  8. EYLEA [Suspect]
     Active Substance: AFLIBERCEPT
     Indication: POLYPOIDAL CHOROIDAL VASCULOPATHY
     Dosage: INTRAVITREAL
     Route: 031
     Dates: start: 20140314, end: 20140408

REACTIONS (2)
  - Retinal haemorrhage [Recovering/Resolving]
  - Macular oedema [Recovering/Resolving]

NARRATIVE: CASE EVENT DATE: 201403
